FAERS Safety Report 17232106 (Version 3)
Quarter: 2020Q2

REPORT INFORMATION
  Report Type: Spontaneous
  Country: US (occurrence: US)
  Receive Date: 20200103
  Receipt Date: 20200501
  Transmission Date: 20200713
  Serious: No
  Sender: FDA-Public Use
  Company Number: US-VERTEX PHARMACEUTICALS-2019-013798

PATIENT
  Age: 16 Year
  Sex: Female

DRUGS (2)
  1. TRIKAFTA [Suspect]
     Active Substance: ELEXACAFTOR\IVACAFTOR\TEZACAFTOR
     Indication: CYSTIC FIBROSIS
     Dosage: 100/50/75MG X 2 AND 150MG, BID
     Route: 048
     Dates: start: 20191222
  2. PULMOZYME [Concomitant]
     Active Substance: DORNASE ALFA

REACTIONS (3)
  - Productive cough [Recovered/Resolved]
  - Haemoptysis [Recovered/Resolved]
  - Mucosal discolouration [Recovered/Resolved]

NARRATIVE: CASE EVENT DATE: 20191222
